FAERS Safety Report 7365045-0 (Version None)
Quarter: 2011Q1

REPORT INFORMATION
  Report Type: 
  Country: None (occurrence: None)
  Receive Date: 20110321
  Receipt Date: 20110316
  Transmission Date: 20110831
  Serious: Yes (Other)
  Sender: FDA-Public Use
  Company Number: FR-AMGEN-FRASP2011014641

PATIENT
  Age: 76 Year
  Sex: Male

DRUGS (3)
  1. NEORECORMON [Concomitant]
     Dosage: UNK DF, UNK
     Route: 058
     Dates: start: 20110203, end: 20110203
  2. ANTINEOPLASTIC AGENTS [Concomitant]
  3. NEUPOGEN [Suspect]
     Indication: PRODUCT USED FOR UNKNOWN INDICATION
     Dosage: 0.3 MG/ML, PER CHEMO REGIM
     Route: 058
     Dates: start: 20110203, end: 20110207

REACTIONS (7)
  - MALAISE [None]
  - HEART RATE INCREASED [None]
  - APHASIA [None]
  - HYPERHIDROSIS [None]
  - ABDOMINAL PAIN [None]
  - HYPOKINESIA [None]
  - DYSPNOEA [None]
